FAERS Safety Report 14027458 (Version 2)
Quarter: 2017Q4

REPORT INFORMATION
  Report Type: Spontaneous
  Country: CA (occurrence: CA)
  Receive Date: 20170929
  Receipt Date: 20171120
  Transmission Date: 20180321
  Serious: Yes (Hospitalization, Other)
  Sender: FDA-Public Use
  Company Number: CA-VISTAPHARM, INC.-VER201709-000656

PATIENT
  Age: 70 Year
  Sex: Male
  Weight: 109 kg

DRUGS (8)
  1. PHENYTOIN. [Suspect]
     Active Substance: PHENYTOIN
     Indication: SEIZURE
     Route: 048
  2. ATENOLOL. [Concomitant]
     Active Substance: ATENOLOL
  3. PHENYTOIN. [Suspect]
     Active Substance: PHENYTOIN
  4. BETAHISTINE [Concomitant]
     Active Substance: BETAHISTINE
  5. DILTIAZEM. [Concomitant]
     Active Substance: DILTIAZEM
  6. VALSARTAN. [Concomitant]
     Active Substance: VALSARTAN
  7. DABIGATRAN ETEXILATE [Suspect]
     Active Substance: DABIGATRAN ETEXILATE
     Indication: PRODUCT USED FOR UNKNOWN INDICATION
     Route: 048
  8. PHENYTOIN. [Suspect]
     Active Substance: PHENYTOIN

REACTIONS (2)
  - Drug interaction [Unknown]
  - Atrial thrombosis [Recovered/Resolved]
